FAERS Safety Report 8357323 (Version 3)
Quarter: 2012Q4

REPORT INFORMATION
  Report Type: 
  Country: US (occurrence: US)
  Receive Date: 20120127
  Receipt Date: 20120925
  Transmission Date: 20130627
  Serious: Yes (Life-Threatening, Hospitalization)
  Sender: FDA-Public Use
  Company Number: US-BAYER-2012-006922

PATIENT
  Age: 17 Year
  Sex: Female
  Weight: 65.76 kg

DRUGS (13)
  1. YAZ [Suspect]
     Indication: CONTRACEPTION
     Dosage: UNK
     Route: 048
     Dates: start: 20090121, end: 20090301
  2. YAZ [Suspect]
     Indication: PREMENSTRUAL SYNDROME
  3. YAZ [Suspect]
     Indication: PREMENSTRUAL SYNDROME
  4. YAZ [Suspect]
     Indication: MENSTRUATION IRREGULAR
  5. IBUPROFEN [Concomitant]
     Dosage: 800 mg, UNK
     Dates: start: 20090110
  6. NAPROXEN [Concomitant]
     Dosage: 500 mg, UNK
     Dates: start: 20090121
  7. CLINDAMYCIN HYDROCHLORIDE [Concomitant]
     Dosage: 300 mg, UNK
     Dates: start: 20090219
  8. HYDROXYZINE HCL [Concomitant]
     Dosage: 25 mg, UNK
     Dates: start: 20090225
  9. PREDNISONE [Concomitant]
     Dosage: 20 mg, UNK
     Dates: start: 20090225
  10. TYLENOL #3 [Concomitant]
     Dosage: UNK
     Route: 048
     Dates: start: 20090203
  11. TORADOL [Concomitant]
  12. CLINDAMYCIN [Concomitant]
  13. STEROIDS [Concomitant]

REACTIONS (15)
  - Pulmonary embolism [None]
  - Chest pain [None]
  - Emotional distress [None]
  - Mental disorder [None]
  - Tachycardia [None]
  - Dyspnoea [None]
  - Cough [None]
  - Vomiting [None]
  - Anxiety [None]
  - Panic attack [None]
  - Fear [None]
  - Dizziness [None]
  - Injury [None]
  - Hyperventilation [None]
  - Palpitations [None]
